FAERS Safety Report 26181527 (Version 1)
Quarter: 2025Q4

REPORT INFORMATION
  Report Type: Spontaneous
  Country: US (occurrence: US)
  Receive Date: 20251221
  Receipt Date: 20251221
  Transmission Date: 20260118
  Serious: No
  Sender: MERCK SHARP & DOHME LLC
  Company Number: US-009507513-2362878

PATIENT
  Age: 6 Year

DRUGS (2)
  1. TEMOZOLOMIDE [Suspect]
     Active Substance: TEMOZOLOMIDE
     Indication: Neuroblastoma recurrent
     Dosage: 2 CYCLES
  2. IRINOTECAN [Concomitant]
     Active Substance: IRINOTECAN
     Indication: Neuroblastoma recurrent
     Dosage: 2 CYCLES

REACTIONS (1)
  - Product use in unapproved indication [Unknown]
